FAERS Safety Report 10089153 (Version 1)
Quarter: 2014Q2

REPORT INFORMATION
  Report Type: Spontaneous
  Country: US (occurrence: None)
  Receive Date: 20140418
  Receipt Date: 20140418
  Transmission Date: 20141212
  Serious: Yes (Hospitalization)
  Sender: FDA-Public Use
  Company Number: None

PATIENT
  Age: 28 Year
  Sex: Male
  Weight: 83.92 kg

DRUGS (1)
  1. OPTIMARK [Suspect]

REACTIONS (9)
  - Hypersensitivity [None]
  - Renal pain [None]
  - Arthralgia [None]
  - Musculoskeletal chest pain [None]
  - Arthralgia [None]
  - Myalgia [None]
  - Burning sensation [None]
  - Rash [None]
  - Paraesthesia [None]
